FAERS Safety Report 19708342 (Version 2)
Quarter: 2021Q3

REPORT INFORMATION
  Report Type: Spontaneous
  Country: US (occurrence: US)
  Receive Date: 20210817
  Receipt Date: 20210818
  Transmission Date: 20211014
  Serious: No
  Sender: FDA-Public Use
  Company Number: US-SA-2020SA274345

PATIENT
  Age: 70 Year
  Sex: Female

DRUGS (1)
  1. TOUJEO MAX [Suspect]
     Active Substance: INSULIN GLARGINE
     Indication: TYPE 2 DIABETES MELLITUS
     Dosage: 74 IU, QD (ONCE DAILY)
     Route: 065
     Dates: start: 20171002

REACTIONS (3)
  - Drug dose omission by device [Unknown]
  - Blood glucose increased [Unknown]
  - Device issue [Unknown]
